FAERS Safety Report 8818521 (Version 5)
Quarter: 2013Q2

REPORT INFORMATION
  Report Type: Report from Study
  Country: IT (occurrence: IT)
  Receive Date: 20121001
  Receipt Date: 20130628
  Transmission Date: 20140414
  Serious: Yes (Death, Hospitalization)
  Sender: FDA-Public Use
  Company Number: IT-ROCHE-1132434

PATIENT
  Age: 69 Year
  Sex: Male
  Weight: 80 kg

DRUGS (11)
  1. BEVACIZUMAB [Suspect]
     Indication: BRAIN NEOPLASM MALIGNANT
     Dosage: LAST DOSE PRIOR TO SAE ON 07/SEP/2012
     Route: 042
     Dates: start: 20120628, end: 20120920
  2. DEXAMETHASONE [Concomitant]
     Route: 065
     Dates: start: 20120713, end: 20120914
  3. DEXAMETHASONE [Concomitant]
     Dosage: DAILY
     Route: 065
     Dates: start: 20120915
  4. CLEXANE [Concomitant]
     Dosage: 4000 U DAILY DOSE
     Route: 065
     Dates: start: 20120629, end: 20120915
  5. TOPIRAMATE [Concomitant]
     Route: 065
     Dates: start: 201205
  6. DEPAKIN [Concomitant]
     Route: 065
     Dates: start: 20100622
  7. KCL RETARD [Concomitant]
     Route: 065
     Dates: start: 20120626
  8. PARIET [Concomitant]
     Route: 065
     Dates: start: 20120713
  9. SERTRALINE [Concomitant]
     Route: 065
     Dates: start: 2012
  10. AMLODIPINE BESILATE/PERINDOPRIL ARGININE [Concomitant]
     Dosage: 5+10MG DAILY
     Route: 065
     Dates: start: 2011
  11. LEVOFLOXACIN [Concomitant]
     Indication: BRONCHITIS
     Route: 065
     Dates: start: 20120924

REACTIONS (1)
  - Partial seizures with secondary generalisation [Fatal]
